FAERS Safety Report 5126157-5 (Version None)
Quarter: 2006Q3

REPORT INFORMATION
  Report Type: 
  Country: None (occurrence: None)
  Receive Date: 20060823
  Receipt Date: 20051019
  Transmission Date: 20061208
  Serious: Yes (Hospitalization)
  Sender: FDA-Public Use
  Company Number: GXBR2005US00553

PATIENT
  Age: 80 Year
  Sex: Female
  Weight: 70.3 kg

DRUGS (4)
  1. ARISTOSPAN [Suspect]
     Indication: OSTEOARTHRITIS
     Dosage: 30 MG, ONCE/SINGLE, INTRA-ARTICULAR
     Route: 014
     Dates: start: 20050223
  2. LIPITOR [Concomitant]
  3. LEVOTHYROXINE SODIUM [Concomitant]
  4. ACTONEL [Concomitant]

REACTIONS (8)
  - AGITATION [None]
  - EOSINOPHIL COUNT DECREASED [None]
  - HALLUCINATION [None]
  - MANIA [None]
  - MEMORY IMPAIRMENT [None]
  - PARANOIA [None]
  - PSYCHOTIC DISORDER [None]
  - SOMNOLENCE [None]
